FAERS Safety Report 15741734 (Version 3)
Quarter: 2019Q2

REPORT INFORMATION
  Report Type: Report from Study
  Country: JP (occurrence: JP)
  Receive Date: 20181219
  Receipt Date: 20190426
  Transmission Date: 20190711
  Serious: Yes (Death, Other)
  Sender: FDA-Public Use
  Company Number: JP-SHIONOGI, INC.-2018001381

PATIENT
  Age: 71 Year
  Sex: Male

DRUGS (2)
  1. URSODEOXYCHOLIC ACID [Concomitant]
     Active Substance: URSODIOL
     Dosage: 400 MG, QD
     Route: 048
  2. MULPLETA [Suspect]
     Active Substance: LUSUTROMBOPAG
     Indication: THROMBOCYTOPENIA
     Dosage: 3 MG, QD
     Route: 048
     Dates: start: 20180620, end: 20180626

REACTIONS (2)
  - Hepatocellular carcinoma [Fatal]
  - Pancytopenia [Not Recovered/Not Resolved]

NARRATIVE: CASE EVENT DATE: 20180621
